FAERS Safety Report 20565409 (Version 1)
Quarter: 2022Q1

REPORT INFORMATION
  Report Type: Spontaneous
  Country: US (occurrence: None)
  Receive Date: 20220307
  Receipt Date: 20220307
  Transmission Date: 20220424
  Serious: No
  Sender: FDA-Public Use
  Company Number: None

PATIENT
  Age: 39 Year
  Sex: Male

DRUGS (1)
  1. SOFOSBUVIR AND VELPATASVIR [Suspect]
     Active Substance: SOFOSBUVIR\VELPATASVIR
     Dosage: 400-100MG  DAILY  ORAL?
     Route: 048
     Dates: start: 202201

REACTIONS (2)
  - COVID-19 [None]
  - Diarrhoea [None]

NARRATIVE: CASE EVENT DATE: 20220128
